FAERS Safety Report 6085122-4 (Version None)
Quarter: 2009Q1

REPORT INFORMATION
  Report Type: 
  Country: None (occurrence: None)
  Receive Date: 20090220
  Receipt Date: 20090211
  Transmission Date: 20090719
  Serious: Yes (Hospitalization)
  Sender: FDA-Public Use
  Company Number: PHHY2009FR04830

PATIENT
  Age: 71 Year
  Sex: Female

DRUGS (8)
  1. INIPOMP [Suspect]
     Dosage: UNK
     Route: 048
     Dates: end: 20090102
  2. MONO-TILDIEM [Suspect]
     Dosage: UNK
     Route: 048
     Dates: start: 20081221, end: 20081229
  3. VOLTARENE [Suspect]
     Dosage: UNK
     Route: 048
     Dates: start: 20081201, end: 20090102
  4. ALDALIX [Suspect]
     Dosage: UNK
     Route: 048
  5. DOMPERIDONE [Concomitant]
     Dosage: UNK
     Route: 048
     Dates: end: 20090104
  6. PRAVASTATIN [Suspect]
     Dosage: UNK
     Dates: end: 20090104
  7. BETAHISTINE [Concomitant]
  8. STABLON [Concomitant]

REACTIONS (6)
  - BASAL CELL CARCINOMA [None]
  - DERMATITIS EXFOLIATIVE [None]
  - HYPERKERATOSIS [None]
  - INSOMNIA [None]
  - PRURITUS [None]
  - RASH MACULO-PAPULAR [None]
